FAERS Safety Report 7150147-4 (Version None)
Quarter: 2010Q4

REPORT INFORMATION
  Report Type: 
  Country: None (occurrence: None)
  Receive Date: 20101124
  Receipt Date: 20100809
  Transmission Date: 20110411
  Serious: No
  Sender: FDA-Public Use
  Company Number: 2010VX001111

PATIENT
  Age: 15 Year
  Sex: Female
  Weight: 49.4421 kg

DRUGS (2)
  1. ACANYA [Suspect]
     Indication: ACNE
     Dosage: DF;QD;TOP
     Route: 061
     Dates: start: 20100707
  2. TRETINOIN [Suspect]

REACTIONS (2)
  - APPLICATION SITE PRURITUS [None]
  - EXPIRED DRUG ADMINISTERED [None]
